FAERS Safety Report 7893204-7 (Version None)
Quarter: 2011Q4

REPORT INFORMATION
  Report Type: 
  Country: None (occurrence: None)
  Receive Date: 20111104
  Receipt Date: 20111028
  Transmission Date: 20120403
  Serious: Yes (Hospitalization)
  Sender: FDA-Public Use
  Company Number: PHEH2011US04831

PATIENT
  Sex: Female
  Weight: 42.4 kg

DRUGS (1)
  1. EXJADE [Suspect]
     Indication: THALASSAEMIA
     Dosage: 1250 MG, DAILY
     Route: 048
     Dates: start: 20060510, end: 20110926

REACTIONS (2)
  - CARDIAC FAILURE CONGESTIVE [None]
  - PAIN [None]
